FAERS Safety Report 12400076 (Version 2)
Quarter: 2016Q2

REPORT INFORMATION
  Report Type: Spontaneous
  Country: GB (occurrence: GB)
  Receive Date: 20160524
  Receipt Date: 20160609
  Transmission Date: 20160815
  Serious: Yes (Death, Hospitalization, Other)
  Sender: FDA-Public Use
  Company Number: GB-WATSON-2016-10353

PATIENT
  Age: 56 Year
  Sex: Male
  Weight: 72 kg

DRUGS (10)
  1. CARBOPLATIN (UNKNOWN) [Suspect]
     Active Substance: CARBOPLATIN
     Indication: PRODUCT USED FOR UNKNOWN INDICATION
     Dosage: 500 MG, 1/ THREE WEEKS
     Route: 042
     Dates: start: 20150319
  2. ALIMTA [Suspect]
     Active Substance: PEMETREXED DISODIUM
     Dosage: 750 MG, 1/ THREE WEEKS
     Route: 042
     Dates: start: 20150209
  3. XALKORI [Suspect]
     Active Substance: CRIZOTINIB
     Indication: CEREBRAL DISORDER
  4. FOLIC ACID (UNKNOWN) [Suspect]
     Active Substance: FOLIC ACID
     Indication: PRODUCT USED FOR UNKNOWN INDICATION
     Dosage: 400 MG, DAILY
     Route: 048
     Dates: start: 20150203
  5. CARBOPLATIN (UNKNOWN) [Suspect]
     Active Substance: CARBOPLATIN
     Dosage: 500 MG, 1/ THREE WEEKS
     Route: 042
     Dates: start: 20150209
  6. CARBOPLATIN (UNKNOWN) [Suspect]
     Active Substance: CARBOPLATIN
     Dosage: 500 MG, 1/ THREE WEEKS
     Route: 042
     Dates: start: 20150302
  7. XALKORI [Suspect]
     Active Substance: CRIZOTINIB
     Indication: EPILEPSY
     Dosage: 250 MG, UNKNOWN
     Route: 048
     Dates: start: 20150318, end: 20150330
  8. VITAMIN B12                        /07503801/ [Concomitant]
     Indication: PRODUCT USED FOR UNKNOWN INDICATION
     Dosage: 1 MG, UNKNOWN
     Route: 065
     Dates: start: 20150203
  9. ALIMTA [Suspect]
     Active Substance: PEMETREXED DISODIUM
     Indication: LUNG ADENOCARCINOMA STAGE IV
     Dosage: 750 MG, 1/ THREE WEEKS
     Route: 042
     Dates: start: 20150319, end: 20150319
  10. ALIMTA [Suspect]
     Active Substance: PEMETREXED DISODIUM
     Dosage: 750 MG, 1/ THREE WEEKS
     Route: 042
     Dates: start: 20150302

REACTIONS (7)
  - Respiratory failure [Fatal]
  - Lymphangiosis carcinomatosa [Unknown]
  - Malignant neoplasm progression [Unknown]
  - Bone marrow failure [Unknown]
  - Off label use [Unknown]
  - Bronchopulmonary aspergillosis [Fatal]
  - Cerebral aspergillosis [Fatal]

NARRATIVE: CASE EVENT DATE: 201501
